FAERS Safety Report 4448207-1 (Version None)
Quarter: 2004Q3

REPORT INFORMATION
  Report Type: 
  Country: None (occurrence: None)
  Receive Date: 20040913
  Receipt Date: 20040901
  Transmission Date: 20050211
  Serious: Yes (Hospitalization)
  Sender: FDA-Public Use
  Company Number: DK-GLAXOSMITHKLINE-B0344541A

PATIENT
  Age: 53 Year

DRUGS (1)
  1. ATOVAQUONE + PROGUANIL HYDROCHLORIDE [Suspect]
     Indication: PROPHYLAXIS
     Dates: start: 20030203, end: 20030225

REACTIONS (6)
  - BLOOD URINE [None]
  - HAEMATURIA [None]
  - HAEMODIALYSIS [None]
  - PYREXIA [None]
  - RENAL IMPAIRMENT [None]
  - TUBULOINTERSTITIAL NEPHRITIS [None]
